FAERS Safety Report 11862048 (Version 2)
Quarter: 2017Q3

REPORT INFORMATION
  Report Type: Spontaneous
  Country: US (occurrence: US)
  Receive Date: 20151222
  Receipt Date: 20170928
  Transmission Date: 20171127
  Serious: Yes (Other)
  Sender: FDA-Public Use
  Company Number: US-ROCHE-642667

PATIENT
  Age: 42 Year
  Sex: Female
  Weight: 54.5 kg

DRUGS (4)
  1. PEGASYS [Suspect]
     Active Substance: PEGINTERFERON ALFA-2A
     Indication: HEPATITIS C
     Dosage: FORM: PRE-FILLED SYRINGE (PFS)
     Route: 058
  2. CYMBALTA [Concomitant]
     Active Substance: DULOXETINE HYDROCHLORIDE
     Route: 065
  3. CYMBALTA [Concomitant]
     Active Substance: DULOXETINE HYDROCHLORIDE
     Route: 065
  4. COPEGUS [Suspect]
     Active Substance: RIBAVIRIN
     Indication: HEPATITIS C
     Route: 048

REACTIONS (20)
  - Pruritus generalised [Unknown]
  - Nervousness [Not Recovered/Not Resolved]
  - Hyperkinesia [Not Recovered/Not Resolved]
  - Arthropathy [Not Recovered/Not Resolved]
  - Vomiting [Recovered/Resolved]
  - Pyrexia [Unknown]
  - Restlessness [Not Recovered/Not Resolved]
  - Chills [Recovering/Resolving]
  - Hypoaesthesia [Recovering/Resolving]
  - Arthralgia [Unknown]
  - Arthralgia [Not Recovered/Not Resolved]
  - Dysphagia [Unknown]
  - Anxiety [Not Recovered/Not Resolved]
  - Tremor [Recovering/Resolving]
  - Affect lability [Not Recovered/Not Resolved]
  - Myalgia [Unknown]
  - Joint swelling [Unknown]
  - Pruritus [Unknown]
  - Lip discolouration [Recovering/Resolving]
  - Drug screen positive [Unknown]

NARRATIVE: CASE EVENT DATE: 20090705
